FAERS Safety Report 13302889 (Version 2)
Quarter: 2017Q1

REPORT INFORMATION
  Report Type: Spontaneous
  Country: GB (occurrence: GB)
  Receive Date: 20170307
  Receipt Date: 20170321
  Transmission Date: 20170428
  Serious: Yes (Other)
  Sender: FDA-Public Use
  Company Number: GB-BAYER-2017-042228

PATIENT
  Age: 39 Year
  Sex: Female

DRUGS (1)
  1. MIRENA [Suspect]
     Active Substance: LEVONORGESTREL
     Dosage: 20 MCG/24HR, CONT
     Route: 015
     Dates: start: 20120223

REACTIONS (5)
  - Device material issue [None]
  - Device difficult to use [None]
  - Cervical dysplasia [None]
  - Medical device monitoring error [None]
  - Device breakage [None]

NARRATIVE: CASE EVENT DATE: 201503
